FAERS Safety Report 4893197-0 (Version None)
Quarter: 2005Q4

REPORT INFORMATION
  Report Type: 
  Country: None (occurrence: None)
  Receive Date: 20051223
  Receipt Date: 20050928
  Transmission Date: 20060501
  Serious: No
  Sender: FDA-Public Use
  Company Number: 2005PV002629

PATIENT
  Age: 72 Year
  Sex: Female
  Weight: 78.0187 kg

DRUGS (6)
  1. SYMLIN [Suspect]
     Indication: DIABETES MELLITUS NON-INSULIN-DEPENDENT
     Dosage: 60 MCG;BID;SC
     Route: 058
     Dates: start: 20050924
  2. LANTUS [Concomitant]
  3. NOVOLOG [Concomitant]
  4. THYROID TAB [Concomitant]
  5. ZOCOR [Concomitant]
  6. BLOOD PRESSURE MEDICATION [Concomitant]

REACTIONS (4)
  - DYSPEPSIA [None]
  - FATIGUE [None]
  - FEELING ABNORMAL [None]
  - NAUSEA [None]
